FAERS Safety Report 9454416 (Version 1)
Quarter: 2013Q3

REPORT INFORMATION
  Report Type: Spontaneous
  Country: FR (occurrence: FR)
  Receive Date: 20130812
  Receipt Date: 20130812
  Transmission Date: 20140515
  Serious: Yes (Hospitalization)
  Sender: FDA-Public Use
  Company Number: FR-PFIZER INC-2013227144

PATIENT
  Age: 48 Year
  Sex: Female

DRUGS (4)
  1. DALACINE [Suspect]
     Indication: INFECTION
     Dosage: 900 MG, 3X/DAY
     Route: 048
     Dates: start: 20130603, end: 20130614
  2. DOXYCYCLINE [Suspect]
     Indication: INFECTION
     Dosage: 100 MG, 2X/DAY
     Route: 048
     Dates: start: 20130603, end: 20130614
  3. METHOTREXATE [Concomitant]
     Indication: RHEUMATIC DISORDER
     Dosage: UNK
  4. PYOSTACINE [Concomitant]
     Dosage: UNK
     Dates: start: 20130601

REACTIONS (2)
  - Rash generalised [Recovered/Resolved]
  - Pruritus [Recovered/Resolved]
